FAERS Safety Report 5257326-1 (Version None)
Quarter: 2007Q1

REPORT INFORMATION
  Report Type: 
  Country: None (occurrence: None)
  Receive Date: 20070307
  Receipt Date: 20070225
  Transmission Date: 20070707
  Serious: Yes (Hospitalization)
  Sender: FDA-Public Use
  Company Number: IL-NOVOPROD-261115

PATIENT
  Age: 32 Year
  Sex: Male

DRUGS (1)
  1. NOVOSEVEN [Suspect]
     Dosage: 7.2 MG, UNK
     Route: 042
     Dates: start: 20070201, end: 20070201

REACTIONS (5)
  - HAEMORRHAGE [None]
  - HEART INJURY [None]
  - IATROGENIC INJURY [None]
  - INTRACARDIAC THROMBUS [None]
  - THROMBOSIS [None]
